FAERS Safety Report 25740090 (Version 1)
Quarter: 2025Q3

REPORT INFORMATION
  Report Type: Other
  Country: EU (occurrence: EU)
  Receive Date: 20250829
  Receipt Date: 20250829
  Transmission Date: 20251021
  Serious: Yes (Hospitalization, Other)
  Sender: ANI
  Company Number: EU-ANIPHARMA-024308

PATIENT
  Age: 68 Year
  Sex: Male

DRUGS (5)
  1. LEUCOVORIN [Suspect]
     Active Substance: LEUCOVORIN\LEUCOVORIN CALCIUM
     Indication: Adenocarcinoma of colon
     Dates: start: 202309, end: 202403
  2. FLUOROURACIL [Concomitant]
     Active Substance: FLUOROURACIL
     Indication: Adenocarcinoma of colon
     Dates: start: 202309, end: 202403
  3. OXALIPLATIN [Concomitant]
     Active Substance: OXALIPLATIN
     Indication: Adenocarcinoma of colon
     Dates: start: 202309, end: 202403
  4. NIVOLUMAB [Concomitant]
     Active Substance: NIVOLUMAB
     Indication: Product used for unknown indication
  5. INTERFERON GAMMA [Concomitant]
     Active Substance: INTERFERON GAMMA
     Indication: Product used for unknown indication

REACTIONS (1)
  - Mucormycosis [Recovered/Resolved]
